FAERS Safety Report 13111344 (Version 1)
Quarter: 2017Q1

REPORT INFORMATION
  Report Type: Report from Study
  Country: DE (occurrence: DE)
  Receive Date: 20170112
  Receipt Date: 20170112
  Transmission Date: 20170428
  Serious: Yes (Death, Hospitalization, Other)
  Sender: FDA-Public Use
  Company Number: DE-GILEAD-2016-0250038

PATIENT

DRUGS (2)
  1. IDELALISIB [Suspect]
     Active Substance: IDELALISIB
     Indication: CHRONIC LYMPHOCYTIC LEUKAEMIA
     Dosage: 150 MG (30 DAILY DOSES PRESCRIBED)
     Route: 065
     Dates: start: 201511
  2. IDELALISIB [Suspect]
     Active Substance: IDELALISIB
     Dosage: 150 MG (30 DAILY DOSES PRESCRIBED)
     Route: 065
     Dates: start: 201512

REACTIONS (2)
  - Death [Fatal]
  - Lymphocytic leukaemia [Unknown]
